FAERS Safety Report 16563509 (Version 1)
Quarter: 2019Q3

REPORT INFORMATION
  Report Type: Spontaneous
  Country: ES (occurrence: ES)
  Receive Date: 20190712
  Receipt Date: 20190712
  Transmission Date: 20191004
  Serious: Yes (Other)
  Sender: FDA-Public Use
  Company Number: ES-AUROBINDO-AUR-APL-2019-039939

PATIENT

DRUGS (3)
  1. NAPROXEN TABLET [Suspect]
     Active Substance: NAPROXEN
     Indication: BLISTER
     Dosage: 220 MG, PRN
     Route: 065
  2. ESTROGEN NOS [Suspect]
     Active Substance: ESTROGENS
     Indication: PRODUCT USED FOR UNKNOWN INDICATION
     Dosage: UNK
     Route: 065
  3. IMATINIB. [Suspect]
     Active Substance: IMATINIB MESYLATE
     Indication: CHRONIC MYELOID LEUKAEMIA
     Dosage: UNK
     Route: 065

REACTIONS (4)
  - Dermatitis [Unknown]
  - Blister [Unknown]
  - Pseudoporphyria [Unknown]
  - Skin fragility [Unknown]
